FAERS Safety Report 4459295-0 (Version None)
Quarter: 2004Q3

REPORT INFORMATION
  Report Type: 
  Country: None (occurrence: None)
  Receive Date: 20040924
  Receipt Date: 20040913
  Transmission Date: 20050211
  Serious: Yes (Other)
  Sender: FDA-Public Use
  Company Number: 2004065469

PATIENT
  Age: 2 Year
  Sex: Male
  Weight: 15.4223 kg

DRUGS (5)
  1. DESITIN CREAMY DIAPER RASH (ZINC OXIDE) [Suspect]
     Indication: PROPHYLAXIS
     Dosage: TOPICAL
     Route: 061
     Dates: end: 20040912
  2. LORATADINE [Concomitant]
  3. POLY-VI-FLOR (ASCORBIC ACID, ERGOCALCIFEROL, NICOTINAMIDE, POTASSIUM F [Concomitant]
  4. CALCIUM (CALCIUM) [Concomitant]
  5. MAGNESIUM SULFATE [Concomitant]

REACTIONS (4)
  - ABNORMAL BEHAVIOUR [None]
  - ANTIGLIADIN ANTIBODY POSITIVE [None]
  - LABORATORY TEST ABNORMAL [None]
  - SPEECH DISORDER [None]
